FAERS Safety Report 19467859 (Version 1)
Quarter: 2021Q2

REPORT INFORMATION
  Report Type: Spontaneous
  Country: DE (occurrence: DE)
  Receive Date: 20210628
  Receipt Date: 20210628
  Transmission Date: 20210717
  Serious: Yes (Other)
  Sender: FDA-Public Use
  Company Number: DE-009507513-2106DEU005914

PATIENT
  Age: 25 Year
  Sex: Female

DRUGS (3)
  1. TEMODAL [Suspect]
     Active Substance: TEMOZOLOMIDE
     Dosage: 240 MG DAILY; QD
     Route: 048
     Dates: start: 2021, end: 2021
  2. TEMODAL [Suspect]
     Active Substance: TEMOZOLOMIDE
     Dosage: 240 MG DAILY; QD
     Route: 048
     Dates: start: 20210618
  3. TEMODAL [Suspect]
     Active Substance: TEMOZOLOMIDE
     Dosage: 120 MG DAILY; QD
     Route: 048
     Dates: start: 20210320, end: 2021

REACTIONS (7)
  - Nausea [Unknown]
  - Bladder pain [Unknown]
  - Blood count abnormal [Unknown]
  - Vomiting [Unknown]
  - Rash erythematous [Unknown]
  - Epilepsy [Unknown]
  - Headache [Unknown]

NARRATIVE: CASE EVENT DATE: 2021
